FAERS Safety Report 18335428 (Version 1)
Quarter: 2020Q4

REPORT INFORMATION
  Report Type: Spontaneous
  Country: US (occurrence: US)
  Receive Date: 20201001
  Receipt Date: 20201001
  Transmission Date: 20210113
  Serious: Yes (Other)
  Sender: FDA-Public Use
  Company Number: US-MYLANLABS-2020M1083318

PATIENT
  Age: 39 Year
  Sex: Male

DRUGS (10)
  1. DOXYCYCLINE. [Suspect]
     Active Substance: DOXYCYCLINE
     Indication: HIDRADENITIS
     Dosage: 100 MILLIGRAM, BID
     Route: 048
     Dates: start: 2019, end: 2019
  2. CLINDAMYCIN. [Suspect]
     Active Substance: CLINDAMYCIN
     Indication: ELEPHANTIASIS
     Dosage: 300 MILLIGRAM, BID FOR 3 MONTHS
     Route: 048
     Dates: start: 2019, end: 2019
  3. METRONIDAZOLE. [Concomitant]
     Active Substance: METRONIDAZOLE
     Indication: HIDRADENITIS
     Dosage: 500 MILLIGRAM, TID
     Route: 065
  4. DOXYCYCLINE. [Suspect]
     Active Substance: DOXYCYCLINE
     Indication: ELEPHANTIASIS
  5. MOXIFLOXACIN. [Concomitant]
     Active Substance: MOXIFLOXACIN
     Indication: HIDRADENITIS
     Dosage: 400 MILLIGRAM, QD
     Route: 065
  6. CLINDAMYCIN. [Suspect]
     Active Substance: CLINDAMYCIN
     Indication: HIDRADENITIS
     Dosage: 150 MILLIGRAM, QD
     Route: 048
     Dates: start: 2019, end: 2019
  7. MOXIFLOXACIN. [Concomitant]
     Active Substance: MOXIFLOXACIN
     Indication: ELEPHANTIASIS
  8. RIFAMPIN. [Concomitant]
     Active Substance: RIFAMPIN
     Indication: ELEPHANTIASIS
  9. RIFAMPIN. [Concomitant]
     Active Substance: RIFAMPIN
     Indication: HIDRADENITIS
     Dosage: 300 MILLIGRAM, BID
     Route: 065
  10. METRONIDAZOLE. [Concomitant]
     Active Substance: METRONIDAZOLE
     Indication: ELEPHANTIASIS

REACTIONS (3)
  - Drug ineffective for unapproved indication [Unknown]
  - Off label use [Unknown]
  - Tinnitus [Unknown]

NARRATIVE: CASE EVENT DATE: 2019
